FAERS Safety Report 8633081 (Version 3)
Quarter: 2013Q1

REPORT INFORMATION
  Report Type: Spontaneous
  Country: BR (occurrence: BR)
  Receive Date: 20120625
  Receipt Date: 20130122
  Transmission Date: 20140127
  Serious: Yes (Life-Threatening, Hospitalization, Other)
  Sender: FDA-Public Use
  Company Number: PHHY2012BR053420

PATIENT
  Sex: Male

DRUGS (20)
  1. CICLOSPORIN [Suspect]
     Indication: HEART TRANSPLANT
     Dosage: 1 DF, BID
     Route: 048
     Dates: start: 2005
  2. MYFORTIC [Suspect]
     Indication: HEART TRANSPLANT
     Dosage: 2 DF, BID
     Route: 048
     Dates: start: 2005
  3. CORTICOSTEROID NOS [Concomitant]
     Dosage: UNK UKN, UNK
     Dates: start: 2005
  4. SIMVASTATIN [Concomitant]
     Indication: BLOOD CHOLESTEROL ABNORMAL
     Dosage: 1 DF, BID
     Route: 048
  5. LASIX [Concomitant]
     Indication: RENAL DISORDER
     Dosage: 2 DF, BID
     Route: 048
  6. DILTIAZEM [Concomitant]
     Dosage: 3 DF, UNK
  7. ATORVASTATIN [Concomitant]
     Dosage: 2 DF, DAILY
  8. LESCOL XL [Concomitant]
     Indication: BLOOD CHOLESTEROL ABNORMAL
     Dosage: 80 MG, UNK
     Route: 048
     Dates: start: 201207
  9. DILTIAZ [Concomitant]
     Indication: RENAL DISORDER
     Dosage: 2 DF, UNK
     Route: 048
     Dates: start: 2005
  10. LOSARTAN [Concomitant]
     Indication: RENAL DISORDER
     Dosage: 1 DF, BID
     Route: 048
  11. ATENOLOL [Concomitant]
     Indication: RENAL DISORDER
     Dosage: 1 DF,DAILY
     Route: 048
  12. CLONIDINE [Concomitant]
     Indication: RENAL DISORDER
     Dosage: 1 DF, BID
  13. HYDROCHLOROTHIAZIDE [Concomitant]
     Indication: RENAL DISORDER
     Dosage: 1 DF, DAILY
     Route: 048
  14. AMLODIPINE [Concomitant]
     Indication: RENAL DISORDER
     Dosage: 1 DF, DAILY
     Route: 048
  15. SERTRALINE [Concomitant]
     Indication: STRESS
     Dosage: 1 DF, DAILY
     Route: 048
  16. OMEPRAZOLE [Concomitant]
     Indication: ABDOMINAL PAIN UPPER
     Dosage: 1 DF, DAILY
     Route: 048
  17. INSULIN [Concomitant]
     Indication: DIABETES MELLITUS
     Dosage: 50 ML IN MORNING, 30 ML IN NIGHT
     Route: 058
  18. DIAZEPAM [Concomitant]
     Indication: SLEEP DISORDER
     Dosage: 1 DF AT NIGHT
     Route: 048
     Dates: start: 2005
  19. FENOFIBRATE [Concomitant]
     Indication: PLATELET COUNT INCREASED
     Dosage: 1 DF DAILY
  20. EZETIMIBE [Concomitant]
     Indication: PLATELET COUNT INCREASED
     Dosage: 4 DF,DAILY

REACTIONS (16)
  - Apnoea [Recovering/Resolving]
  - Fatigue [Recovering/Resolving]
  - Dyspnoea [Recovering/Resolving]
  - Vomiting [Recovering/Resolving]
  - Diarrhoea [Recovering/Resolving]
  - Graft haemorrhage [Not Recovered/Not Resolved]
  - Aortic injury [Not Recovered/Not Resolved]
  - Obesity [Not Recovered/Not Resolved]
  - Weight increased [Not Recovered/Not Resolved]
  - Diabetes mellitus [Not Recovered/Not Resolved]
  - Blood disorder [Recovering/Resolving]
  - Renal failure [Not Recovered/Not Resolved]
  - Platelet count increased [Not Recovered/Not Resolved]
  - Blood cholesterol increased [Not Recovered/Not Resolved]
  - Blood creatine increased [Not Recovered/Not Resolved]
  - Blood creatine phosphokinase abnormal [Recovering/Resolving]
